FAERS Safety Report 17831149 (Version 1)
Quarter: 2020Q2

REPORT INFORMATION
  Report Type: Other
  Country: US (occurrence: US)
  Receive Date: 20200527
  Receipt Date: 20200527
  Transmission Date: 20200714
  Serious: No
  Sender: FDA-Public Use
  Company Number: US-BIOVITRUM-2019US1238

PATIENT
  Sex: Female

DRUGS (15)
  1. GLYBURIDE. [Concomitant]
     Active Substance: GLYBURIDE
  2. FOLIC ACID. [Concomitant]
     Active Substance: FOLIC ACID
  3. METFORMIN [Concomitant]
     Active Substance: METFORMIN HYDROCHLORIDE
  4. HYDROCHLOROTHIAZIDE. [Concomitant]
     Active Substance: HYDROCHLOROTHIAZIDE
  5. DICYCLOMINE [Concomitant]
     Active Substance: DICYCLOMINE HYDROCHLORIDE
  6. KINERET [Suspect]
     Active Substance: ANAKINRA
     Route: 058
     Dates: start: 20190506
  7. LISINOPRIL. [Concomitant]
     Active Substance: LISINOPRIL
  8. VITAMINS [Concomitant]
     Active Substance: VITAMINS
  9. LEVOTHYROXINE. [Concomitant]
     Active Substance: LEVOTHYROXINE
  10. OMEPRAZOLE. [Concomitant]
     Active Substance: OMEPRAZOLE
  11. NAPROXEN. [Concomitant]
     Active Substance: NAPROXEN
  12. METOPROLOL. [Concomitant]
     Active Substance: METOPROLOL
  13. POTASSIUM [Concomitant]
     Active Substance: POTASSIUM
  14. ALLOPURINOL. [Concomitant]
     Active Substance: ALLOPURINOL
  15. GABAPENTIN. [Concomitant]
     Active Substance: GABAPENTIN

REACTIONS (2)
  - Pain in extremity [Unknown]
  - Back pain [Unknown]
